FAERS Safety Report 17499902 (Version 1)
Quarter: 2020Q1

REPORT INFORMATION
  Report Type: Spontaneous
  Country: CN (occurrence: CN)
  Receive Date: 20200304
  Receipt Date: 20200304
  Transmission Date: 20200409
  Serious: Yes (Hospitalization)
  Sender: FDA-Public Use
  Company Number: CN-BAXTER-2020BAX004935

PATIENT
  Age: 55 Year
  Sex: Female
  Weight: 49 kg

DRUGS (27)
  1. 0.9% SODIUM CHLORIDE INJECTION [Suspect]
     Active Substance: SODIUM CHLORIDE
     Dosage: TRASTUZUMAB + 0.9% NS
     Route: 041
     Dates: start: 20191223, end: 20191223
  2. 0.9% SODIUM CHLORIDE INJECTION [Suspect]
     Active Substance: SODIUM CHLORIDE
     Dosage: DOSE RE-INTRODUCED TRASTUZUMAB + 0.9% NS
     Route: 041
  3. 5% GLUCOSE  INJECTION [Suspect]
     Active Substance: DEXTROSE
     Indication: MEDICATION DILUTION
     Dosage: PACLITAXEL + 5% GS
     Route: 041
     Dates: start: 20191224, end: 20191224
  4. PACLITAXEL. [Suspect]
     Active Substance: PACLITAXEL
     Indication: METASTASES TO BONE
  5. PACLITAXEL. [Suspect]
     Active Substance: PACLITAXEL
     Indication: BREAST CANCER STAGE IV
  6. ENDOXAN [Suspect]
     Active Substance: CYCLOPHOSPHAMIDE
     Indication: METASTASES TO BONE
  7. TRASTUZUMAB. [Suspect]
     Active Substance: TRASTUZUMAB
     Indication: BREAST CANCER METASTATIC
  8. PACLITAXEL. [Suspect]
     Active Substance: PACLITAXEL
     Indication: METASTASES TO LUNG
  9. ENDOXAN [Suspect]
     Active Substance: CYCLOPHOSPHAMIDE
     Indication: METASTASES TO LIVER
     Dosage: DOSE RE-INTRODUCED CYCLOPHOSPHAMIDE + 0.9% NS
     Route: 041
  10. ENDOXAN [Suspect]
     Active Substance: CYCLOPHOSPHAMIDE
     Indication: METASTASES TO LUNG
  11. ENDOXAN [Suspect]
     Active Substance: CYCLOPHOSPHAMIDE
     Indication: BREAST CANCER METASTATIC
  12. TRASTUZUMAB. [Suspect]
     Active Substance: TRASTUZUMAB
     Indication: METASTASES TO LIVER
     Dosage: DOSE RE-INTRODUCED TRASTUZUMAB + 0.9% NS
     Route: 041
  13. PACLITAXEL. [Suspect]
     Active Substance: PACLITAXEL
     Indication: METASTASES TO LYMPH NODES
     Dosage: PACLITAXEL + 5% GS
     Route: 041
     Dates: start: 20191224, end: 20191224
  14. ENDOXAN [Suspect]
     Active Substance: CYCLOPHOSPHAMIDE
     Indication: METASTASES TO LYMPH NODES
     Dosage: CYCLOPHOSPHAMIDE + 0.9% NS 2100 ML
     Route: 041
     Dates: start: 20191225, end: 20191225
  15. TRASTUZUMAB. [Suspect]
     Active Substance: TRASTUZUMAB
     Indication: METASTASES TO LYMPH NODES
     Dosage: TRASTUZUMAB + 0.9% NS
     Route: 041
     Dates: start: 20191223, end: 20191223
  16. TRASTUZUMAB. [Suspect]
     Active Substance: TRASTUZUMAB
     Indication: BREAST CANCER STAGE IV
  17. 0.9% SODIUM CHLORIDE INJECTION [Suspect]
     Active Substance: SODIUM CHLORIDE
     Indication: MEDICATION DILUTION
     Dosage: CYCLOPHOSPHAMIDE + 0.9% NS 2100 ML
     Route: 041
     Dates: start: 20191225, end: 20191225
  18. PACLITAXEL. [Suspect]
     Active Substance: PACLITAXEL
     Indication: METASTASES TO PLEURA
  19. PACLITAXEL. [Suspect]
     Active Substance: PACLITAXEL
     Indication: BREAST CANCER METASTATIC
  20. ENDOXAN [Suspect]
     Active Substance: CYCLOPHOSPHAMIDE
     Indication: BREAST CANCER STAGE IV
  21. TRASTUZUMAB. [Suspect]
     Active Substance: TRASTUZUMAB
     Indication: METASTASES TO LUNG
  22. TRASTUZUMAB. [Suspect]
     Active Substance: TRASTUZUMAB
     Indication: METASTASES TO PLEURA
  23. PACLITAXEL. [Suspect]
     Active Substance: PACLITAXEL
     Indication: METASTASES TO LIVER
     Dosage: DOSE RE-INTRODUCED PACLITAXEL + 0.9% NS
     Route: 041
  24. ENDOXAN [Suspect]
     Active Substance: CYCLOPHOSPHAMIDE
     Indication: METASTASES TO PLEURA
  25. 0.9% SODIUM CHLORIDE INJECTION [Suspect]
     Active Substance: SODIUM CHLORIDE
     Dosage: DOSE RE-INTRODUCED CYCLOPHOSPHAMIDE + 0.9% NS.
     Route: 041
  26. 5% GLUCOSE  INJECTION [Suspect]
     Active Substance: DEXTROSE
     Dosage: DOSE RE-INTRODUCED PACLITAXEL + 5% GS
     Route: 041
  27. TRASTUZUMAB. [Suspect]
     Active Substance: TRASTUZUMAB
     Indication: METASTASES TO BONE

REACTIONS (1)
  - Bone marrow failure [Recovering/Resolving]

NARRATIVE: CASE EVENT DATE: 20200109
